FAERS Safety Report 13651848 (Version 3)
Quarter: 2017Q2

REPORT INFORMATION
  Report Type: Spontaneous
  Country: FR (occurrence: FR)
  Receive Date: 20170614
  Receipt Date: 20170621
  Transmission Date: 20170830
  Serious: Yes (Death, Life-Threatening, Hospitalization, Other)
  Sender: FDA-Public Use
  Company Number: FR-PFIZER INC-2017260746

PATIENT
  Age: 97 Year
  Sex: Female

DRUGS (14)
  1. LASILIX FAIBLE [Suspect]
     Active Substance: FUROSEMIDE
     Dosage: 20 MG, 2X/DAY
     Route: 048
     Dates: start: 20170325, end: 20170509
  2. TARDYFERON [Suspect]
     Active Substance: FERROUS SULFATE
     Dosage: 1 DF, 1X/DAY
     Route: 048
     Dates: start: 20170325, end: 20170509
  3. TERBUTALINE SULFATE. [Suspect]
     Active Substance: TERBUTALINE SULFATE
     Dosage: 1 DF, DAILY
     Dates: start: 20170324, end: 20170510
  4. RAMIPRIL. [Suspect]
     Active Substance: RAMIPRIL
     Dosage: 0.75 MG, 1X/DAY
     Route: 048
     Dates: start: 20170325, end: 20170510
  5. PANTOPRAZOLE [Suspect]
     Active Substance: PANTOPRAZOLE
     Dosage: 20 MG, 1X/DAY
     Route: 048
     Dates: start: 20170324, end: 20170510
  6. LORMETAZEPAM [Concomitant]
     Active Substance: LORMETAZEPAM
     Dosage: UNK
  7. MIRTAZAPINE. [Concomitant]
     Active Substance: MIRTAZAPINE
     Dosage: UNK
  8. GAVISCON [Concomitant]
     Active Substance: ALUMINUM HYDROXIDE\MAGNESIUM CARBONATE
     Dosage: UNK
  9. ELIQUIS [Suspect]
     Active Substance: APIXABAN
     Dosage: 2.5 MG, 2X/DAY
     Route: 048
     Dates: start: 20170201, end: 20170509
  10. PARACETAMOL [Suspect]
     Active Substance: ACETAMINOPHEN
     Dosage: 2 DF, 4X/DAY (EVERY 6 HOURS, I.E. 8 DF/D )
     Route: 048
     Dates: start: 20170319, end: 20170509
  11. NORMACOL [Concomitant]
     Active Substance: KARAYA GUM
     Dosage: UNK
  12. OROKEN [Suspect]
     Active Substance: CEFIXIME
     Dosage: 200 MG, 2X/DAY
     Route: 048
     Dates: start: 20170507, end: 20170509
  13. MOVICOL [Concomitant]
     Active Substance: POLYETHYLENE GLYCOL 3350\POTASSIUM CHLORIDE\SODIUM BICARBONATE\SODIUM CHLORIDE
     Dosage: UNK
  14. NORMACOL /00086101/ [Concomitant]
     Active Substance: SULFAMETHOXAZOLE\TRIMETHOPRIM

REACTIONS (8)
  - Thrombocytopenia [Fatal]
  - Dehydration [Unknown]
  - Cardiac arrest [Fatal]
  - Haematoma [Unknown]
  - Craniocerebral injury [Unknown]
  - Erythema [Unknown]
  - General physical health deterioration [Unknown]
  - Haemorrhage intracranial [Fatal]

NARRATIVE: CASE EVENT DATE: 20170509
